FAERS Safety Report 8934905 (Version 1)
Quarter: 2012Q4

REPORT INFORMATION
  Report Type: 
  Country: US (occurrence: US)
  Receive Date: 20121129
  Receipt Date: 20121129
  Transmission Date: 20130627
  Serious: Yes (Other)
  Sender: FDA-Public Use
  Company Number: US-CELGENEUS-163-21880-12113670

PATIENT
  Sex: Female

DRUGS (2)
  1. REVLIMID [Suspect]
     Indication: MYELODYSPLASTIC SYNDROME
     Dosage: 5 Milligram
     Route: 048
     Dates: start: 201110
  2. HIGH BLOOD PRESSURE [Concomitant]
     Indication: BLOOD PRESSURE HIGH
     Route: 065

REACTIONS (7)
  - Eye haemorrhage [Unknown]
  - Haemorrhage [Unknown]
  - Gait disturbance [Unknown]
  - Fall [Unknown]
  - Stomatitis [Unknown]
  - Dizziness [Unknown]
  - Fatigue [Unknown]
